FAERS Safety Report 15691024 (Version 1)
Quarter: 2018Q4

REPORT INFORMATION
  Report Type: Spontaneous
  Country: CN (occurrence: CN)
  Receive Date: 20181205
  Receipt Date: 20181205
  Transmission Date: 20190205
  Serious: Yes (Hospitalization)
  Sender: FDA-Public Use
  Company Number: CN-PFIZER INC-2018493236

PATIENT
  Age: 76 Year
  Sex: Male

DRUGS (2)
  1. PREDNISONE ACETATE [Suspect]
     Active Substance: PREDNISONE ACETATE
     Indication: ORGANISING PNEUMONIA
     Dosage: 20 MG, 1X/DAY
     Route: 048
     Dates: start: 20180416, end: 20180527
  2. METHYLPREDNISOLONE. [Suspect]
     Active Substance: METHYLPREDNISOLONE
     Indication: ORGANISING PNEUMONIA
     Dosage: 6 MG, 1X/DAY
     Route: 048
     Dates: start: 20180528, end: 20180920

REACTIONS (3)
  - Spinal compression fracture [Recovering/Resolving]
  - Muscular weakness [Recovering/Resolving]
  - Osteoporosis [Recovering/Resolving]

NARRATIVE: CASE EVENT DATE: 20180820
